FAERS Safety Report 4451981-1 (Version None)
Quarter: 2004Q3

REPORT INFORMATION
  Report Type: 
  Country: None (occurrence: None)
  Receive Date: 20040915
  Receipt Date: 20040915
  Transmission Date: 20050211
  Serious: Yes (Hospitalization)
  Sender: FDA-Public Use
  Company Number: None

PATIENT
  Age: 68 Year
  Sex: Male
  Weight: 81.8 kg

DRUGS (14)
  1. DIGOXIN [Suspect]
     Indication: ATRIAL FIBRILLATION
     Dosage: 0.25MG PO DAILY
     Route: 048
  2. AMIODARONE HCL [Suspect]
     Indication: ATRIAL FIBRILLATION
     Dosage: 200 MG PO DAILY
     Route: 048
  3. ASPIRIN [Concomitant]
  4. VALSARTAN [Concomitant]
  5. CARVEDILOL [Concomitant]
  6. FUROSEMIDE [Concomitant]
  7. KCL TAB [Concomitant]
  8. AMIODARONE [Concomitant]
  9. LOVASTATIN [Concomitant]
  10. MULTI-VITAMIN [Concomitant]
  11. PHENOBARBITAL TAB [Concomitant]
  12. COMBIVENT [Concomitant]
  13. METHIMAZOLE [Concomitant]
  14. PAROXETINE HCL [Concomitant]

REACTIONS (3)
  - BRADYCARDIA [None]
  - DRUG TOXICITY [None]
  - TREATMENT NONCOMPLIANCE [None]
